FAERS Safety Report 21807411 (Version 2)
Quarter: 2023Q1

REPORT INFORMATION
  Report Type: Report from Study
  Country: US (occurrence: US)
  Receive Date: 20230102
  Receipt Date: 20230213
  Transmission Date: 20230418
  Serious: No
  Sender: FDA-Public Use
  Company Number: US-ABBVIE-22K-163-4519530-00

PATIENT
  Age: 39 Year
  Sex: Female

DRUGS (2)
  1. SKYRIZI [Suspect]
     Active Substance: RISANKIZUMAB-RZAA
     Indication: Psoriasis
     Dosage: 150 MILLIGRAM WEEK 0, WEEK FOUR AND EVERY 12 WEEKS THEREAFTER.?LAST ADMIN DATE:2022?ONSET DATE OF...
     Route: 058
     Dates: start: 20220819
  2. SKYRIZI [Suspect]
     Active Substance: RISANKIZUMAB-RZAA
     Indication: Psoriatic arthropathy
     Dosage: LAST ADMIN DATE: 2022?AND REDNESS EVENT ONSET DATE WAS 2022
     Route: 058
     Dates: start: 20221128

REACTIONS (12)
  - Abdominal pain upper [Unknown]
  - Erythema [Unknown]
  - Drug hypersensitivity [Unknown]
  - Pain [Unknown]
  - Drug ineffective [Unknown]
  - Off label use [Unknown]
  - Dyspnoea [Unknown]
  - Vomiting [Unknown]
  - Psoriatic arthropathy [Unknown]
  - Headache [Unknown]
  - Psoriasis [Unknown]
  - Loss of personal independence in daily activities [Unknown]

NARRATIVE: CASE EVENT DATE: 20221101
